FAERS Safety Report 10684662 (Version 1)
Quarter: 2014Q4

REPORT INFORMATION
  Report Type: Spontaneous
  Country: FR (occurrence: None)
  Receive Date: 20141229
  Receipt Date: 20141229
  Transmission Date: 20150529
  Serious: Yes (Hospitalization)
  Sender: FDA-Public Use
  Company Number: 2677158

PATIENT
  Age: 91 Year
  Sex: Female
  Weight: 55 kg

DRUGS (13)
  1. ARANESP [Concomitant]
     Active Substance: DARBEPOETIN ALFA
  2. FORTIMEL [Concomitant]
     Active Substance: DIETARY SUPPLEMENT
  3. POLARAMINE [Concomitant]
     Active Substance: DEXCHLORPHENIRAMINE MALEATE
  4. IMOVANE [Concomitant]
     Active Substance: ZOPICLONE
  5. LANSOYL [Concomitant]
     Active Substance: MINERAL OIL
  6. AMLOR [Concomitant]
     Active Substance: AMLODIPINE BESYLATE
  7. DOLIPRANE [Concomitant]
     Active Substance: ACETAMINOPHEN
  8. SPASFON [Concomitant]
     Active Substance: PHLOROGLUCINOL
  9. INEXIUM [Concomitant]
     Active Substance: ESOMEPRAZOLE
  10. DEXAMETHASONE. [Concomitant]
     Active Substance: DEXAMETHASONE
  11. LASILIX [Concomitant]
     Active Substance: FUROSEMIDE
  12. MOTILIUM [Concomitant]
     Active Substance: DOMPERIDONE
  13. CARBOPLATIN. [Suspect]
     Active Substance: CARBOPLATIN
     Indication: OVARIAN CANCER
     Dosage: NOT OTHERWISE SPECIFIED
     Route: 042
     Dates: start: 20141204, end: 20141204

REACTIONS (4)
  - Respiratory distress [None]
  - Pruritus [None]
  - Erythema [None]
  - Hypersensitivity [None]

NARRATIVE: CASE EVENT DATE: 20141204
